APPROVED DRUG PRODUCT: ESTRADIOL VALERATE
Active Ingredient: ESTRADIOL VALERATE
Strength: 20MG/ML
Dosage Form/Route: INJECTABLE;INJECTION
Application: A216656 | Product #002 | TE Code: AO
Applicant: XIROMED PHARMA ESPANA SL
Approved: Apr 28, 2023 | RLD: No | RS: No | Type: RX